FAERS Safety Report 18653103 (Version 1)
Quarter: 2020Q4

REPORT INFORMATION
  Report Type: Spontaneous
  Country: US (occurrence: US)
  Receive Date: 20201223
  Receipt Date: 20201223
  Transmission Date: 20210114
  Serious: Yes (Other)
  Sender: FDA-Public Use
  Company Number: US-AMGEN-USASP2020206938

PATIENT
  Sex: Male

DRUGS (2)
  1. XGEVA [Suspect]
     Active Substance: DENOSUMAB
     Indication: PROSTATE CANCER
  2. XGEVA [Suspect]
     Active Substance: DENOSUMAB
     Indication: PROPHYLAXIS
     Dosage: UNK
     Route: 065

REACTIONS (1)
  - Osteonecrosis of jaw [Unknown]

NARRATIVE: CASE EVENT DATE: 2020
